FAERS Safety Report 6803418-2 (Version None)
Quarter: 2010Q2

REPORT INFORMATION
  Report Type: 
  Country: None (occurrence: None)
  Receive Date: 20100628
  Receipt Date: 20100622
  Transmission Date: 20101027
  Serious: Yes (Hospitalization)
  Sender: FDA-Public Use
  Company Number: CH-ROCHE-711022

PATIENT
  Age: 13 Year
  Sex: Female
  Weight: 56 kg

DRUGS (5)
  1. TORADOL [Suspect]
     Indication: HEADACHE
     Route: 041
     Dates: start: 20100430, end: 20100430
  2. IRFEN [Interacting]
     Indication: HEADACHE
     Route: 048
     Dates: start: 20100426, end: 20100501
  3. ASPIRINE [Interacting]
     Indication: HEADACHE
     Route: 048
     Dates: start: 20100428, end: 20100428
  4. TRAMAL [Concomitant]
     Route: 048
     Dates: start: 20100428, end: 20100428
  5. IMIGRAN [Concomitant]
     Route: 048
     Dates: start: 20100429, end: 20100429

REACTIONS (6)
  - ABDOMINAL PAIN [None]
  - DRUG INTERACTION [None]
  - EROSIVE DUODENITIS [None]
  - GASTRIC ULCER HAEMORRHAGE [None]
  - HAEMATEMESIS [None]
  - HAEMORRHAGIC ANAEMIA [None]
